FAERS Safety Report 24744438 (Version 2)
Quarter: 2025Q3

REPORT INFORMATION
  Report Type: Spontaneous
  Country: US (occurrence: US)
  Receive Date: 20241217
  Receipt Date: 20250826
  Transmission Date: 20251020
  Serious: Yes (Other)
  Sender: COOPERSURGICAL
  Company Number: US-COOPERSURGICAL, INC.-2024CPS003870

PATIENT
  Age: 47 Year
  Sex: Female
  Weight: 104.31 kg

DRUGS (1)
  1. PARAGARD T 380A [Suspect]
     Active Substance: COPPER
     Indication: Contraception
     Route: 015
     Dates: start: 20080801, end: 20191011

REACTIONS (17)
  - Surgery [Recovered/Resolved]
  - Uterine polyp [Recovered/Resolved]
  - Device breakage [Recovered/Resolved]
  - Foreign body in reproductive tract [Recovered/Resolved]
  - Complication of device removal [Recovered/Resolved]
  - Embedded device [Recovered/Resolved]
  - Anxiety [Unknown]
  - Stress [Unknown]
  - Procedural pain [Recovered/Resolved]
  - Pelvic pain [Recovered/Resolved]
  - Abnormal uterine bleeding [Unknown]
  - Menometrorrhagia [Unknown]
  - Device expulsion [Recovered/Resolved]
  - Actinomycosis [Unknown]
  - Dysmenorrhoea [Unknown]
  - Bacterial vaginosis [Recovered/Resolved]
  - Device dislocation [Recovered/Resolved]

NARRATIVE: CASE EVENT DATE: 20160101
